FAERS Safety Report 15449226 (Version 2)
Quarter: 2019Q2

REPORT INFORMATION
  Report Type: Spontaneous
  Country: US (occurrence: US)
  Receive Date: 20181001
  Receipt Date: 20190403
  Transmission Date: 20190711
  Serious: No
  Sender: FDA-Public Use
  Company Number: US-SHIRE-US201837577

PATIENT
  Sex: Male

DRUGS (2)
  1. XIIDRA [Suspect]
     Active Substance: LIFITEGRAST
     Indication: OFF LABEL USE
  2. XIIDRA [Suspect]
     Active Substance: LIFITEGRAST
     Indication: EYE DISCHARGE
     Dosage: UNK UNK, 2X/DAY:BID
     Route: 047
     Dates: start: 201809

REACTIONS (5)
  - Drug ineffective [Unknown]
  - Oropharyngeal pain [Unknown]
  - Off label use [Unknown]
  - Instillation site pain [Unknown]
  - Drug intolerance [Unknown]
